FAERS Safety Report 25317346 (Version 1)
Quarter: 2025Q2

REPORT INFORMATION
  Report Type: Spontaneous
  Country: DE (occurrence: DE)
  Receive Date: 20250515
  Receipt Date: 20250515
  Transmission Date: 20250716
  Serious: Yes (Other)
  Sender: BIOFRONTERA BIOSCIENCE
  Company Number: DE-Biofrontera-2025BIO00066

PATIENT
  Age: 73 Year
  Sex: Male

DRUGS (2)
  1. AMELUZ [Suspect]
     Active Substance: AMINOLEVULINIC ACID HYDROCHLORIDE
     Indication: Actinic keratosis
     Route: 050
     Dates: start: 20250304, end: 20250304
  2. DEVICE [Suspect]
     Active Substance: DEVICE
     Indication: Actinic keratosis
     Dates: start: 20250304, end: 20250304

REACTIONS (4)
  - Syncope [Recovered/Resolved]
  - Diarrhoea [Recovered/Resolved]
  - Headache [Recovered/Resolved]
  - Nausea [Recovered/Resolved]

NARRATIVE: CASE EVENT DATE: 20250305
